FAERS Safety Report 5900735-5 (Version None)
Quarter: 2008Q3

REPORT INFORMATION
  Report Type: 
  Country: None (occurrence: None)
  Receive Date: 20080929
  Receipt Date: 20080917
  Transmission Date: 20090109
  Serious: Yes (Other)
  Sender: FDA-Public Use
  Company Number: DE-RANBAXY-2008RR-18095

PATIENT
  Age: 82 Year
  Sex: Female

DRUGS (1)
  1. CLINDAMYCINE RANBAXY 300 MG CAPSULES [Suspect]
     Indication: OSTEITIS
     Dosage: 600 MG, QD
     Route: 048
     Dates: start: 20080801, end: 20080801

REACTIONS (5)
  - DIARRHOEA [None]
  - ERUCTATION [None]
  - HICCUPS [None]
  - MUSCULOSKELETAL DISCOMFORT [None]
  - MYALGIA [None]
